FAERS Safety Report 22022945 (Version 4)
Quarter: 2023Q4

REPORT INFORMATION
  Report Type: Report from Study
  Country: US (occurrence: US)
  Receive Date: 20230222
  Receipt Date: 20231207
  Transmission Date: 20240110
  Serious: No
  Sender: FDA-Public Use
  Company Number: US-002147023-NVSC2023US038064

PATIENT
  Sex: Female

DRUGS (2)
  1. KESIMPTA [Suspect]
     Active Substance: OFATUMUMAB
     Indication: Multiple sclerosis
     Dosage: 20 MG, QW
     Route: 058
     Dates: start: 20230123
  2. KESIMPTA [Suspect]
     Active Substance: OFATUMUMAB
     Dosage: UNK, (LAST INJECTION)
     Route: 065
     Dates: start: 20230615

REACTIONS (5)
  - Photophobia [Unknown]
  - Urticaria [Unknown]
  - Pruritus [Unknown]
  - Rash [Recovered/Resolved]
  - Headache [Unknown]
